FAERS Safety Report 4529597-8 (Version None)
Quarter: 2005Q1

REPORT INFORMATION
  Report Type: 
  Country: None (occurrence: None)
  Receive Date: 20041202
  Receipt Date: 20040812
  Transmission Date: 20050727
  Serious: No
  Sender: FDA-Public Use
  Company Number: 200419481BWH

PATIENT
  Age: 62 Year
  Sex: Male

DRUGS (1)
  1. LEVITRA [Suspect]
     Indication: ERECTILE DYSFUNCTION
     Dosage: 20 MG, BID, ORAL
     Route: 048

REACTIONS (1)
  - ERECTILE DYSFUNCTION [None]
